FAERS Safety Report 6300287-4 (Version None)
Quarter: 2009Q3

REPORT INFORMATION
  Report Type: 
  Country: None (occurrence: None)
  Receive Date: 20090803
  Receipt Date: 20090723
  Transmission Date: 20100115
  Serious: Yes (Hospitalization, Other)
  Sender: FDA-Public Use
  Company Number: 2009AL004893

PATIENT
  Age: 1 Hour
  Sex: Female

DRUGS (2)
  1. SERTRALINE HYDROCHLORIDE              (AELLC) [Suspect]
     Indication: DRUG EXPOSURE DURING PREGNANCY
     Dosage: 100 MG; QD; TRPL
     Route: 064
  2. CO-DYDRAMOL [Concomitant]

REACTIONS (5)
  - CRYING [None]
  - DRUG WITHDRAWAL SYNDROME NEONATAL [None]
  - DYSKINESIA NEONATAL [None]
  - IRRITABILITY [None]
  - MATERNAL DRUGS AFFECTING FOETUS [None]
